FAERS Safety Report 4533677-0 (Version None)
Quarter: 2004Q4

REPORT INFORMATION
  Report Type: 
  Country: None (occurrence: None)
  Receive Date: 20041221
  Receipt Date: 20041021
  Transmission Date: 20050328
  Serious: Yes (Other)
  Sender: FDA-Public Use
  Company Number: US-GLAXOSMITHKLINE-A0530834A

PATIENT
  Age: 75 Year
  Sex: Male
  Weight: 94.5 kg

DRUGS (11)
  1. REQUIP [Suspect]
     Indication: DYSKINESIA
     Route: 048
     Dates: start: 20041001, end: 20041017
  2. DIGITEK [Concomitant]
  3. THYROID TAB [Concomitant]
  4. DIOVAN [Concomitant]
     Route: 048
  5. LEXAPRO [Concomitant]
  6. MACROBID [Concomitant]
  7. IRON [Concomitant]
  8. VITAMIN SUPPLEMENTS [Concomitant]
  9. AMIODARONE HCL [Concomitant]
  10. COUMADIN [Concomitant]
     Route: 048
  11. CARBIDOPA AND LEVODOPA [Concomitant]
     Route: 048

REACTIONS (4)
  - BLOOD PRESSURE FLUCTUATION [None]
  - DEAFNESS [None]
  - DIZZINESS [None]
  - MUSCULOSKELETAL STIFFNESS [None]
